FAERS Safety Report 11031773 (Version 1)
Quarter: 2015Q2

REPORT INFORMATION
  Report Type: Spontaneous
  Country: AU (occurrence: AU)
  Receive Date: 20150415
  Receipt Date: 20150415
  Transmission Date: 20150821
  Serious: Yes (Other)
  Sender: FDA-Public Use
  Company Number: AU-BAUSCH-BL-2015-010856

PATIENT
  Sex: Male

DRUGS (4)
  1. BASILIXIMAB [Suspect]
     Active Substance: BASILIXIMAB
     Indication: PRODUCT USED FOR UNKNOWN INDICATION
     Route: 065
  2. CYCLOSPORIN [Suspect]
     Active Substance: CYCLOSPORINE
     Indication: PRODUCT USED FOR UNKNOWN INDICATION
     Route: 065
  3. MYCOPHENOLATE MOFETIL. [Suspect]
     Active Substance: MYCOPHENOLATE MOFETIL
     Indication: PRODUCT USED FOR UNKNOWN INDICATION
     Route: 065
  4. PREDNISOLONE. [Suspect]
     Active Substance: PREDNISOLONE
     Indication: PRODUCT USED FOR UNKNOWN INDICATION
     Route: 065

REACTIONS (19)
  - Renal tubular necrosis [Unknown]
  - Pseudomonas infection [Unknown]
  - Pneumonia aspiration [Unknown]
  - B-cell lymphoma [Unknown]
  - Intestinal perforation [Unknown]
  - Status epilepticus [Unknown]
  - Iron deficiency anaemia [Unknown]
  - Abdominal distension [Unknown]
  - Transplant dysfunction [Unknown]
  - Haemorrhage intracranial [Unknown]
  - Abdominal pain [Unknown]
  - Epstein-Barr virus infection [Unknown]
  - Toxicity to various agents [Unknown]
  - Renal impairment [Unknown]
  - Central nervous system lesion [Unknown]
  - Post transplant lymphoproliferative disorder [Unknown]
  - Generalised tonic-clonic seizure [Unknown]
  - Depression [Unknown]
  - Pyrexia [Unknown]
